FAERS Safety Report 9928048 (Version 2)
Quarter: 2017Q2

REPORT INFORMATION
  Report Type: Report from Study
  Country: US (occurrence: US)
  Receive Date: 20140227
  Receipt Date: 20170626
  Transmission Date: 20170830
  Serious: Yes (Other)
  Sender: FDA-Public Use
  Company Number: US-ROCHE-1355035

PATIENT
  Sex: Female
  Weight: 37.5 kg

DRUGS (5)
  1. NUTROPIN AQ [Suspect]
     Active Substance: SOMATROPIN
     Indication: BODY HEIGHT BELOW NORMAL
     Route: 058
     Dates: start: 201402
  2. NUTROPIN AQ [Suspect]
     Active Substance: SOMATROPIN
     Dosage: 0.28 MG/KG/WEEK
     Route: 058
  3. VITAMIN D3 [Concomitant]
     Active Substance: CHOLECALCIFEROL
     Route: 048
     Dates: start: 20130904
  4. NUTROPIN AQ [Suspect]
     Active Substance: SOMATROPIN
     Route: 058
     Dates: start: 201309, end: 201406
  5. NUTROPIN AQ [Suspect]
     Active Substance: SOMATROPIN
     Route: 058
     Dates: start: 201112, end: 201302

REACTIONS (3)
  - Scoliosis [Unknown]
  - Delayed puberty [Unknown]
  - Growth retardation [Unknown]
